FAERS Safety Report 5804056-0 (Version None)
Quarter: 2008Q3

REPORT INFORMATION
  Report Type: 
  Country: None (occurrence: None)
  Receive Date: 20080703
  Receipt Date: 20070702
  Transmission Date: 20090109
  Serious: Yes (Other)
  Sender: FDA-Public Use
  Company Number: WAES 0707USA00313

PATIENT
  Age: 42 Year
  Sex: Male
  Weight: 83.9154 kg

DRUGS (3)
  1. HYZAAR [Suspect]
     Indication: HYPERTENSION
  2. KALETRA [Concomitant]
  3. TRUVADA [Concomitant]

REACTIONS (1)
  - THROMBOCYTOPENIA [None]
